FAERS Safety Report 24390810 (Version 1)
Quarter: 2024Q4

REPORT INFORMATION
  Report Type: Spontaneous
  Country: HK (occurrence: HK)
  Receive Date: 20241003
  Receipt Date: 20241003
  Transmission Date: 20250114
  Serious: Yes (Other)
  Sender: ALEXION PHARMACEUTICALS
  Company Number: HK-AstraZeneca-CH-00711311A

PATIENT

DRUGS (8)
  1. DURVALUMAB [Suspect]
     Active Substance: DURVALUMAB
     Dosage: UNK
     Route: 065
  2. DURVALUMAB [Suspect]
     Active Substance: DURVALUMAB
     Dosage: UNK
  3. DURVALUMAB [Suspect]
     Active Substance: DURVALUMAB
     Dosage: UNK
     Route: 065
  4. DURVALUMAB [Suspect]
     Active Substance: DURVALUMAB
     Dosage: UNK
  5. TREMELIMUMAB [Suspect]
     Active Substance: TREMELIMUMAB
     Dosage: UNK
  6. TREMELIMUMAB [Suspect]
     Active Substance: TREMELIMUMAB
     Dosage: UNK
  7. TREMELIMUMAB [Suspect]
     Active Substance: TREMELIMUMAB
     Dosage: UNK
  8. TREMELIMUMAB [Suspect]
     Active Substance: TREMELIMUMAB
     Dosage: UNK

REACTIONS (3)
  - Hypothyroidism [Unknown]
  - Diabetes mellitus [Unknown]
  - Rash [Unknown]
